FAERS Safety Report 17111067 (Version 3)
Quarter: 2020Q1

REPORT INFORMATION
  Report Type: Spontaneous
  Country: RU (occurrence: RU)
  Receive Date: 20191204
  Receipt Date: 20200120
  Transmission Date: 20200409
  Serious: Yes (Other)
  Sender: FDA-Public Use
  Company Number: RU-ADHERA THERAPEUTICS, INC.-2019ADHERA000609

PATIENT

DRUGS (6)
  1. CARDIOMAGNYL [Concomitant]
     Active Substance: ASPIRIN\MAGNESIUM HYDROXIDE
     Indication: CARDIOVASCULAR EVENT PROPHYLAXIS
     Dosage: 1 (75MG/15.2MG) DOSAGE FORM, QD
     Route: 048
  2. ARTRA [Concomitant]
     Indication: OSTEOARTHRITIS
     Dosage: UNK
  3. CAPOTEN [Concomitant]
     Active Substance: CAPTOPRIL
     Indication: BLOOD PRESSURE INCREASED
     Dosage: 50 MG, PRN
     Dates: end: 201912
  4. PRESTANCE [Suspect]
     Active Substance: AMLODIPINE BESYLATE\PERINDOPRIL ARGININE
     Indication: HYPERTENSION
     Dosage: 1 (10MG/10MG) TABLET, QD (IN THE EVENING)
     Route: 048
     Dates: start: 2019, end: 201912
  5. EKVATOR [Concomitant]
     Indication: BLOOD PRESSURE DECREASED
     Dosage: 1 (10MG/20MG) DOSAGE FORM, QD
     Dates: start: 201911
  6. CARVEDILOL. [Concomitant]
     Active Substance: CARVEDILOL
     Indication: PRODUCT USED FOR UNKNOWN INDICATION
     Dosage: UNK

REACTIONS (5)
  - Hypertensive crisis [Recovered/Resolved]
  - Product quality issue [Recovered/Resolved]
  - Suspected counterfeit product [Recovered/Resolved]
  - Product use issue [Recovered/Resolved]
  - Drug ineffective [Recovered/Resolved]

NARRATIVE: CASE EVENT DATE: 2019
